FAERS Safety Report 5836919-4 (Version None)
Quarter: 2008Q3

REPORT INFORMATION
  Report Type: 
  Country: None (occurrence: None)
  Receive Date: 20080807
  Receipt Date: 20080728
  Transmission Date: 20090109
  Serious: Yes (Life-Threatening, Hospitalization, Disabling)
  Sender: FDA-Public Use
  Company Number: US-AVENTIS-200814733US

PATIENT
  Sex: Female

DRUGS (1)
  1. KETEK [Suspect]
     Dosage: DOSE: UNK
     Dates: start: 20060719, end: 20060721

REACTIONS (1)
  - RENAL FAILURE ACUTE [None]
